FAERS Safety Report 21704233 (Version 1)
Quarter: 2022Q4

REPORT INFORMATION
  Report Type: Spontaneous
  Country: CN (occurrence: CN)
  Receive Date: 20221209
  Receipt Date: 20221209
  Transmission Date: 20230113
  Serious: Yes (Hospitalization, Other)
  Sender: FDA-Public Use
  Company Number: CN-JNJFOC-20221201528

PATIENT
  Age: 79 Year
  Sex: Female

DRUGS (1)
  1. SPORANOX [Suspect]
     Active Substance: ITRACONAZOLE
     Indication: Pneumonia fungal
     Route: 048
     Dates: start: 20220506, end: 20220527

REACTIONS (1)
  - Pseudoaldosteronism [Recovering/Resolving]

NARRATIVE: CASE EVENT DATE: 20220516
